FAERS Safety Report 7584912-6 (Version None)
Quarter: 2011Q2

REPORT INFORMATION
  Report Type: 
  Country: None (occurrence: None)
  Receive Date: 20110630
  Receipt Date: 20110627
  Transmission Date: 20111010
  Serious: Yes (Hospitalization, Other)
  Sender: FDA-Public Use
  Company Number: US-TEVA-288119USA

PATIENT
  Age: 62 Year
  Sex: Male

DRUGS (3)
  1. GEMCITABINE [Suspect]
     Indication: GENITOURINARY TRACT NEOPLASM
  2. CARBOPLATIN [Suspect]
     Indication: GENITOURINARY TRACT NEOPLASM
  3. MITOMYCIN [Suspect]
     Indication: GENITOURINARY TRACT NEOPLASM

REACTIONS (6)
  - NAUSEA [None]
  - CANDIDIASIS [None]
  - VOMITING [None]
  - PULMONARY TOXICITY [None]
  - STAPHYLOCOCCAL INFECTION [None]
  - THROMBOTIC MICROANGIOPATHY [None]
